FAERS Safety Report 21163112 (Version 1)
Quarter: 2022Q3

REPORT INFORMATION
  Report Type: Spontaneous
  Country: US (occurrence: US)
  Receive Date: 20220802
  Receipt Date: 20220802
  Transmission Date: 20221026
  Serious: No
  Sender: FDA-Public Use
  Company Number: US-PFIZER INC-PV202200034210

PATIENT
  Age: 65 Year
  Sex: Female

DRUGS (1)
  1. INLYTA [Suspect]
     Active Substance: AXITINIB
     Dosage: 5 MG
     Dates: end: 202206

REACTIONS (6)
  - Neoplasm progression [Unknown]
  - Visual impairment [Unknown]
  - Dry mouth [Unknown]
  - Dysphagia [Unknown]
  - Fatigue [Unknown]
  - Skin exfoliation [Unknown]
